FAERS Safety Report 14473756 (Version 1)
Quarter: 2018Q1

REPORT INFORMATION
  Report Type: Spontaneous
  Country: US (occurrence: US)
  Receive Date: 20180201
  Receipt Date: 20180201
  Transmission Date: 20180509
  Serious: No
  Sender: FDA-Public Use
  Company Number: US-PFIZER INC-2018043738

PATIENT
  Age: 61 Year
  Sex: Female
  Weight: 53.7 kg

DRUGS (1)
  1. CHANTIX [Suspect]
     Active Substance: VARENICLINE TARTRATE
     Indication: SMOKING CESSATION THERAPY
     Dosage: 1 MG, 2X/DAY (1MG TABLET TWICE A DAY BY MOUTH)
     Route: 048

REACTIONS (2)
  - Gastroenteritis viral [Unknown]
  - Influenza [Unknown]

NARRATIVE: CASE EVENT DATE: 20180108
